FAERS Safety Report 4317577-7 (Version None)
Quarter: 2004Q1

REPORT INFORMATION
  Report Type: 
  Country: None (occurrence: None)
  Receive Date: 20040312
  Receipt Date: 20040303
  Transmission Date: 20041129
  Serious: Yes (Hospitalization)
  Sender: FDA-Public Use
  Company Number: 2004007009

PATIENT
  Age: 35 Year
  Sex: Female

DRUGS (2)
  1. VIAGRA [Suspect]
     Indication: FEMALE ORGASMIC DISORDER
     Dosage: 50 MG (DAILY), ORAL
     Route: 048
     Dates: start: 20040203, end: 20040203
  2. AZATHIOPRINE [Concomitant]

REACTIONS (2)
  - MENORRHAGIA [None]
  - VAGINAL HAEMORRHAGE [None]
